FAERS Safety Report 9698568 (Version 1)
Quarter: 2013Q4

REPORT INFORMATION
  Report Type: Spontaneous
  Country: IT (occurrence: IT)
  Receive Date: 20131120
  Receipt Date: 20131120
  Transmission Date: 20140711
  Serious: Yes (Other)
  Sender: FDA-Public Use
  Company Number: IT-PFIZER INC-2013327342

PATIENT
  Age: 74 Year
  Sex: Female

DRUGS (7)
  1. CORDARONE [Suspect]
     Indication: ATRIAL FIBRILLATION
     Dosage: 200 MG, 1X/DAY
     Route: 048
     Dates: start: 19930101, end: 20130924
  2. KARVEZIDE [Interacting]
     Indication: HYPERTENSION
     Dosage: 1 DF, 1X/DAY
     Route: 048
     Dates: start: 19930101, end: 20130924
  3. KARVEA [Interacting]
     Indication: HYPERTENSION
     Dosage: UNK
     Route: 048
     Dates: start: 19930101, end: 20130924
  4. KANRENOL [Interacting]
     Dosage: UNK
     Route: 048
     Dates: start: 19930101, end: 20130924
  5. CATAPRESAN TTS [Concomitant]
     Dosage: 1 - 2.5 MG
     Route: 062
     Dates: start: 19930101, end: 20130924
  6. CARDURA [Concomitant]
     Dosage: UNK
     Dates: start: 19930101, end: 20130924
  7. CARDIOASPIRIN [Concomitant]
     Dosage: UNK
     Dates: start: 19930101, end: 20130924

REACTIONS (3)
  - Drug interaction [Recovering/Resolving]
  - Renal impairment [Recovering/Resolving]
  - Hyperkalaemia [Recovering/Resolving]
